FAERS Safety Report 15183604 (Version 1)
Quarter: 2018Q3

REPORT INFORMATION
  Report Type: Spontaneous
  Country: GR (occurrence: GR)
  Receive Date: 20180723
  Receipt Date: 20180723
  Transmission Date: 20181010
  Serious: Yes (Other)
  Sender: FDA-Public Use
  Company Number: PHHY2018GR047643

PATIENT
  Age: 23 Year
  Sex: Female

DRUGS (1)
  1. LEVETIRACETAM. [Suspect]
     Active Substance: LEVETIRACETAM
     Indication: PARTIAL SEIZURES
     Dosage: UNK
     Route: 065

REACTIONS (7)
  - Status epilepticus [Unknown]
  - Speech disorder [Unknown]
  - Brain oedema [Unknown]
  - Partial seizures with secondary generalisation [Unknown]
  - MELAS syndrome [Unknown]
  - Hemianopia [Unknown]
  - Hemiparesis [Unknown]
